FAERS Safety Report 9745096 (Version 1)
Quarter: 2013Q4

REPORT INFORMATION
  Report Type: Report from Study
  Country: JP (occurrence: JP)
  Receive Date: 20131211
  Receipt Date: 20131211
  Transmission Date: 20140711
  Serious: Yes (Death)
  Sender: FDA-Public Use
  Company Number: JP-SHIRE-ALL1-2013-08605

PATIENT
  Age: 77 Year
  Sex: Male

DRUGS (15)
  1. 405 (LANTHANUM CARBONATE) [Suspect]
     Indication: HYPERPHOSPHATAEMIA
     Dosage: 1500 MG, 1X/DAY:QD
     Route: 048
     Dates: start: 20091222
  2. 405 (LANTHANUM CARBONATE) [Suspect]
     Dosage: 750 MG, 1X/DAY:QD
     Route: 048
     Dates: start: 20090529, end: 20091221
  3. RENAGEL                            /01459902/ [Concomitant]
     Indication: HYPERPHOSPHATAEMIA
     Dosage: 750 MG, UNKNOWN
     Route: 048
     Dates: start: 20080708
  4. OXAROL [Concomitant]
     Indication: PRODUCT USED FOR UNKNOWN INDICATION
     Dosage: 7.5 ?G, 1X/WEEK
     Route: 042
     Dates: start: 20090305
  5. ANPLAG [Concomitant]
     Indication: PRODUCT USED FOR UNKNOWN INDICATION
     Dosage: 300 MG, UNKNOWN
     Route: 048
  6. PROCYLIN [Concomitant]
     Indication: PRODUCT USED FOR UNKNOWN INDICATION
     Dosage: 120 ?G, UNKNOWN
     Route: 048
  7. BAYASPIRIN [Concomitant]
     Indication: PRODUCT USED FOR UNKNOWN INDICATION
     Dosage: 100 MG, UNKNOWN
     Route: 048
  8. SENNARIDE [Concomitant]
     Indication: PRODUCT USED FOR UNKNOWN INDICATION
     Dosage: 48 MG, UNKNOWN
     Route: 048
  9. METHYCOBAL [Concomitant]
     Indication: PRODUCT USED FOR UNKNOWN INDICATION
     Dosage: 1500 ?G, UNKNOWN
     Route: 048
  10. PLETAAL [Concomitant]
     Indication: PRODUCT USED FOR UNKNOWN INDICATION
     Dosage: 200 MG, UNKNOWN
     Route: 048
  11. MEXITIL [Concomitant]
     Indication: PRODUCT USED FOR UNKNOWN INDICATION
     Dosage: 300 MG, UNKNOWN
     Route: 048
  12. ROHYPNOL [Concomitant]
     Indication: PRODUCT USED FOR UNKNOWN INDICATION
     Dosage: 1 MG, UNKNOWN
     Route: 048
  13. LENDORMIN DAINIPPO [Concomitant]
     Indication: PRODUCT USED FOR UNKNOWN INDICATION
     Dosage: 0.25 MG, UNKNOWN
     Route: 048
  14. NESP [Concomitant]
     Indication: PRODUCT USED FOR UNKNOWN INDICATION
     Dosage: 30 ?G, UNKNOWN
     Route: 042
  15. CROTAMITON [Concomitant]
     Indication: PRODUCT USED FOR UNKNOWN INDICATION
     Dosage: UNK, UNKNOWN
     Route: 061

REACTIONS (1)
  - Death [Fatal]
